FAERS Safety Report 4443713-8 (Version None)
Quarter: 2004Q3

REPORT INFORMATION
  Report Type: 
  Country: None (occurrence: None)
  Receive Date: 20040729
  Receipt Date: 20040202
  Transmission Date: 20050211
  Serious: Yes (Death)
  Sender: FDA-Public Use
  Company Number: US-JNJFOC-20040200880

PATIENT
  Age: 31 Year
  Sex: Female

DRUGS (4)
  1. RISPERDAL [Suspect]
     Indication: MAJOR DEPRESSION
     Dosage: 2 MG, 2 IN 1 DAY, ORAL;  1 MG, 2 IN 1 DAY, ORAL
     Route: 048
     Dates: end: 20031201
  2. RISPERDAL [Suspect]
     Indication: MAJOR DEPRESSION
     Dosage: 2 MG, 2 IN 1 DAY, ORAL;  1 MG, 2 IN 1 DAY, ORAL
     Route: 048
     Dates: start: 20031201
  3. GEODON [Suspect]
     Dosage: 20 MG
  4. SEROQUEL [Suspect]
     Dosage: 100 MG

REACTIONS (1)
  - NEUROLEPTIC MALIGNANT SYNDROME [None]
